FAERS Safety Report 6931948-1 (Version None)
Quarter: 2010Q3

REPORT INFORMATION
  Report Type: 
  Country: None (occurrence: None)
  Receive Date: 20100819
  Receipt Date: 20100812
  Transmission Date: 20110219
  Serious: Yes (Hospitalization)
  Sender: FDA-Public Use
  Company Number: BE-BRISTOL-MYERS SQUIBB COMPANY-15180656

PATIENT
  Age: 68 Year
  Sex: Male
  Weight: 56 kg

DRUGS (16)
  1. CETUXIMAB [Suspect]
     Indication: HEAD AND NECK CANCER
     Dosage: 1DAY 1CYCLE ONE ONLY.RECEIVED LAST DOSE:22JUN2010.SUBSEQUENT DOSE:250MG/M2 WEEKLY IV;INTERR:29JUN10
     Route: 042
     Dates: start: 20100407
  2. CISPLATIN [Suspect]
     Indication: HEAD AND NECK CANCER
     Dosage: ON DAY 1 EVERY 21 DAYS,LAST DOSE ON 8JUN2010;INTERR:29JUN10
     Route: 042
     Dates: start: 20100407
  3. PEMETREXED DISODIUM [Suspect]
     Indication: HEAD AND NECK CANCER
     Dosage: ON DAY ONE EVERY 21 DAYS.LAST DOSE ON 8JUN2010;INTERR:29JUN10
     Route: 042
     Dates: start: 20100407
  4. FOLAVIT [Concomitant]
     Dates: start: 20100423
  5. ACETAMINOPHEN [Concomitant]
  6. OMEPRAZOLE [Concomitant]
  7. NEUROBION [Concomitant]
     Dates: start: 20100508
  8. NULYTELY [Concomitant]
     Dates: start: 20100519
  9. FRAXODI [Concomitant]
     Dates: start: 20100519
  10. MINOCYCLINE HCL [Concomitant]
     Dates: start: 20100519
  11. TERRAMYCIN V CAP [Concomitant]
     Dates: start: 20100520
  12. POLYMYCIN B SULFATE [Concomitant]
     Dates: start: 20100520
  13. MOTILIUM [Concomitant]
     Dates: start: 20100529
  14. METRONIDAZOLE [Concomitant]
     Dosage: FORMULATION:CREAM
  15. LAXOBERON [Concomitant]
     Dates: start: 20100506
  16. DEXAMETHASONE [Concomitant]
     Dates: start: 20100503, end: 20100508

REACTIONS (2)
  - BLOOD CREATININE INCREASED [None]
  - WEIGHT DECREASED [None]
